FAERS Safety Report 17919284 (Version 6)
Quarter: 2021Q2

REPORT INFORMATION
  Report Type: Report from Study
  Country: US (occurrence: US)
  Receive Date: 20200619
  Receipt Date: 20210619
  Transmission Date: 20210717
  Serious: Yes (Other)
  Sender: FDA-Public Use
  Company Number: NVSC2020US172531

PATIENT
  Age: 82 Year
  Sex: Male

DRUGS (2)
  1. COSENTYX [Suspect]
     Active Substance: SECUKINUMAB
     Indication: PRODUCT USED FOR UNKNOWN INDICATION
     Dosage: 300 MG, QW
     Route: 058
  2. COSENTYX [Suspect]
     Active Substance: SECUKINUMAB
     Dosage: 300 MG, EVERY 2 WEEKS
     Route: 058

REACTIONS (3)
  - Weight decreased [Unknown]
  - Inappropriate schedule of product administration [Unknown]
  - Latent tuberculosis [Recovered/Resolved]

NARRATIVE: CASE EVENT DATE: 202103
